FAERS Safety Report 7973539-X (Version None)
Quarter: 2011Q4

REPORT INFORMATION
  Report Type: 
  Country: None (occurrence: None)
  Receive Date: 20111213
  Receipt Date: 20111205
  Transmission Date: 20120403
  Serious: Yes (Death, Other)
  Sender: FDA-Public Use
  Company Number: ES-B.I. PHARMACEUTICALS,INC./RIDGEFIELD-2011-EU-00917GD

PATIENT
  Age: 62 Year
  Sex: Male

DRUGS (2)
  1. RT PA [Suspect]
     Indication: ISCHAEMIC STROKE
     Route: 042
  2. DABIGATRAN [Suspect]
     Indication: ATRIAL FIBRILLATION
     Dosage: 220 MG
     Route: 048

REACTIONS (6)
  - COMA [None]
  - APHASIA [None]
  - HEMIPLEGIA [None]
  - CEREBRAL HAEMORRHAGE [None]
  - ISCHAEMIC STROKE [None]
  - BRAIN MIDLINE SHIFT [None]
